FAERS Safety Report 9000568 (Version 1)
Quarter: 2013Q1

REPORT INFORMATION
  Report Type: Spontaneous
  Country: US (occurrence: US)
  Receive Date: 20130107
  Receipt Date: 20130107
  Transmission Date: 20140127
  Serious: No
  Sender: FDA-Public Use
  Company Number: US-PFIZER INC-2013004643

PATIENT
  Age: 33 Year
  Sex: Male
  Weight: 97.51 kg

DRUGS (4)
  1. LYRICA [Suspect]
     Indication: FIBROMYALGIA
     Dosage: UNK
     Route: 048
     Dates: start: 20121207, end: 20121229
  2. PERCOCET [Concomitant]
     Dosage: 10/325MG,2X/DAY
  3. AMPHETAMINE/DEXTROAMPHETAMINE [Concomitant]
     Dosage: UNK
  4. PHENTERMINE [Concomitant]
     Dosage: 37.5 MG, UNK

REACTIONS (1)
  - Pain [Not Recovered/Not Resolved]
